FAERS Safety Report 7636871-5 (Version None)
Quarter: 2011Q3

REPORT INFORMATION
  Report Type: 
  Country: None (occurrence: None)
  Receive Date: 20110726
  Receipt Date: 20110713
  Transmission Date: 20111222
  Serious: Yes (Hospitalization)
  Sender: FDA-Public Use
  Company Number: JP-SANOFI-AVENTIS-2011SA046368

PATIENT
  Age: 66 Year
  Sex: Male

DRUGS (2)
  1. SODIUM POLYSTYRENE SULFONATE [Suspect]
     Route: 048
  2. ALL OTHER THERAPEUTIC PRODUCTS [Concomitant]
     Route: 048

REACTIONS (6)
  - MUSCULAR WEAKNESS [None]
  - ABDOMINAL PAIN LOWER [None]
  - CONSTIPATION [None]
  - BLOOD CREATINE PHOSPHOKINASE INCREASED [None]
  - MYOPATHY [None]
  - HYPOKALAEMIA [None]
